FAERS Safety Report 7295613-6 (Version None)
Quarter: 2011Q1

REPORT INFORMATION
  Report Type: 
  Country: None (occurrence: None)
  Receive Date: 20110216
  Receipt Date: 20110114
  Transmission Date: 20110831
  Serious: No
  Sender: FDA-Public Use
  Company Number: US-ABBOTT-10P-163-0693973-00

PATIENT
  Sex: Male
  Weight: 88.53 kg

DRUGS (3)
  1. SIMCOR [Suspect]
     Indication: HYPERLIPIDAEMIA
     Dosage: IN THE MORNING
     Route: 048
     Dates: start: 20101201
  2. ASPIRIN [Concomitant]
     Indication: DRUG THERAPY
     Route: 048
  3. SIMCOR [Suspect]
     Indication: BLOOD CHOLESTEROL INCREASED

REACTIONS (7)
  - ACNE [None]
  - MYALGIA [None]
  - PARAESTHESIA [None]
  - FLUSHING [None]
  - ARTHRALGIA [None]
  - PRURITUS [None]
  - LIBIDO DECREASED [None]
